FAERS Safety Report 7148194-1 (Version None)
Quarter: 2010Q4

REPORT INFORMATION
  Report Type: 
  Country: None (occurrence: None)
  Receive Date: 20101209
  Receipt Date: 20101125
  Transmission Date: 20110411
  Serious: Yes (Other)
  Sender: FDA-Public Use
  Company Number: PHHY2010JP80615

PATIENT
  Sex: Female

DRUGS (2)
  1. DIOVAN [Suspect]
     Route: 048
  2. ACTOS [Suspect]

REACTIONS (2)
  - OEDEMA PERIPHERAL [None]
  - SWELLING FACE [None]
